FAERS Safety Report 6209563-7 (Version None)
Quarter: 2009Q2

REPORT INFORMATION
  Report Type: 
  Country: None (occurrence: None)
  Receive Date: 20090601
  Receipt Date: 20090520
  Transmission Date: 20091009
  Serious: Yes (Hospitalization, Other)
  Sender: FDA-Public Use
  Company Number: FR-JNJFOC-20090505449

PATIENT
  Age: 41 Year
  Sex: Male
  Weight: 86 kg

DRUGS (5)
  1. REMICADE [Suspect]
     Indication: PSORIASIS
     Route: 042
  2. PREDNISONE [Suspect]
     Indication: ADRENAL INSUFFICIENCY
     Route: 048
  3. OMEPRAZOLE [Concomitant]
     Indication: GASTROOESOPHAGEAL REFLUX DISEASE
  4. FUROSEMIDE [Concomitant]
     Indication: HYPERTENSION
  5. NOCTRAN [Concomitant]
     Indication: SLEEP DISORDER
     Route: 048

REACTIONS (3)
  - ADRENAL INSUFFICIENCY [None]
  - BRONCHITIS [None]
  - INFECTION [None]
